FAERS Safety Report 6970711-2 (Version None)
Quarter: 2010Q3

REPORT INFORMATION
  Report Type: 
  Country: None (occurrence: None)
  Receive Date: 20100908
  Receipt Date: 20100827
  Transmission Date: 20110219
  Serious: Yes (Other)
  Sender: FDA-Public Use
  Company Number: PL-AMGEN-QUU436163

PATIENT
  Sex: Female

DRUGS (1)
  1. ENBREL [Suspect]
     Indication: RHEUMATOID ARTHRITIS
     Route: 058
     Dates: start: 20100322, end: 20100726

REACTIONS (6)
  - ASTHENIA [None]
  - DYSPNOEA [None]
  - ERYTHEMA [None]
  - SKIN BURNING SENSATION [None]
  - SWELLING [None]
  - VERTIGO [None]
